FAERS Safety Report 26218254 (Version 1)
Quarter: 2025Q4

REPORT INFORMATION
  Report Type: Spontaneous
  Country: EU (occurrence: EU)
  Receive Date: 20251231
  Receipt Date: 20251231
  Transmission Date: 20260117
  Serious: Yes (Other)
  Sender: ADVANZ PHARMA
  Company Number: EU-ADVANZ PHARMA-202512011516

PATIENT

DRUGS (1)
  1. SALAGEN [Suspect]
     Active Substance: PILOCARPINE HYDROCHLORIDE
     Indication: Dry eye
     Dosage: UNK SALAGEN (FILM-COATED TABLET)
     Route: 048
     Dates: start: 20251108, end: 20251214

REACTIONS (3)
  - Hyperhidrosis [Recovered/Resolved]
  - Salivary hypersecretion [Recovered/Resolved]
  - Tremor [Recovered/Resolved]

NARRATIVE: CASE EVENT DATE: 20251207
